FAERS Safety Report 4761472-6 (Version None)
Quarter: 2005Q3

REPORT INFORMATION
  Report Type: 
  Country: None (occurrence: None)
  Receive Date: 20050830
  Receipt Date: 20050617
  Transmission Date: 20060218
  Serious: Yes (Other)
  Sender: FDA-Public Use
  Company Number: US_0410106501

PATIENT
  Age: 44 Year
  Sex: Female
  Weight: 111 kg

DRUGS (31)
  1. ZYPREXA [Suspect]
     Dosage: 20 MG/1 DAY
     Dates: start: 20040301, end: 20040901
  2. SYMBYAX [Suspect]
  3. METFORMIN [Concomitant]
  4. GLIPIZIDE /METFORMIN [Concomitant]
  5. LEXAPRO [Concomitant]
  6. RISPERDAL [Concomitant]
  7. MIRTAZAPINE [Concomitant]
  8. LISINOPRIL [Concomitant]
  9. LESCOL [Concomitant]
  10. FLONASE [Concomitant]
  11. AMOXICILLIN [Concomitant]
  12. SEROQUEL [Concomitant]
  13. LANTUS [Concomitant]
  14. LORAZEPAM [Concomitant]
  15. PHISOHEX (HEXACHLOROPHENE) [Concomitant]
  16. TRIAMCINOLONE [Concomitant]
  17. CYCLOBENZAPRINE HCL [Concomitant]
  18. FUROSEMIDE [Concomitant]
  19. RANITIDINE [Concomitant]
  20. IBUPROFEN [Concomitant]
  21. PREMARIN [Concomitant]
  22. QVAR (BECLOMETASONE DIPROPIONATE) [Concomitant]
  23. ALBUTEROL [Concomitant]
  24. METOCLOPRAMID (METOCLOPRAMIDE HYDROCHLORIDE) [Concomitant]
  25. CIMETIDINE [Concomitant]
  26. GLUCOTROL [Concomitant]
  27. PANTOPRAZOLE [Concomitant]
  28. PROMETHAZINE [Concomitant]
  29. CLARITHROMYCIN [Concomitant]
  30. MIDAZOLAM  /USA/ (MIDAZOLAM HYDROCHLORIDE) [Concomitant]
  31. DURAGESIC-100 [Concomitant]

REACTIONS (14)
  - ANXIETY [None]
  - BLOOD GLUCOSE INCREASED [None]
  - BRONCHITIS [None]
  - BRONCHOSPASM [None]
  - DIABETES MELLITUS [None]
  - DIZZINESS [None]
  - DYSPEPSIA [None]
  - DYSPHAGIA [None]
  - GASTRITIS [None]
  - GASTROENTERITIS [None]
  - INSOMNIA [None]
  - REFLUX OESOPHAGITIS [None]
  - VISION BLURRED [None]
  - WEIGHT INCREASED [None]
